FAERS Safety Report 5853431-7 (Version None)
Quarter: 2008Q3

REPORT INFORMATION
  Report Type: 
  Country: None (occurrence: None)
  Receive Date: 20080820
  Receipt Date: 20080805
  Transmission Date: 20090109
  Serious: Yes (Hospitalization)
  Sender: FDA-Public Use
  Company Number: FLCT20080143

PATIENT
  Age: 37 Year
  Sex: Male

DRUGS (3)
  1. DICLOREUM TISSUGEL (DICLOFENAC EPOLAMINUM) [Suspect]
     Indication: ARTHRALGIA
     Dosage: 1 PATCH DAILY, TOPICAL
     Route: 061
     Dates: start: 20080616, end: 20080617
  2. RELPAX [Suspect]
     Indication: HEADACHE
     Dosage: 20 MG, AS NEEDED, ORAL
     Route: 048
     Dates: start: 20080609, end: 20080616
  3. AMITRIPTYLINE HCL [Concomitant]

REACTIONS (2)
  - ANGIOEDEMA [None]
  - URTICARIA [None]
